FAERS Safety Report 8075134-3 (Version None)
Quarter: 2012Q1

REPORT INFORMATION
  Report Type: 
  Country: None (occurrence: None)
  Receive Date: 20120127
  Receipt Date: 20120124
  Transmission Date: 20120608
  Serious: No
  Sender: FDA-Public Use
  Company Number: US-BIOGENIDEC-2011BI041528

PATIENT
  Sex: Female

DRUGS (1)
  1. AVONEX [Suspect]
     Indication: MULTIPLE SCLEROSIS
     Route: 030
     Dates: start: 20100511

REACTIONS (17)
  - INJECTION SITE INDURATION [None]
  - SCOLIOSIS [None]
  - INCREASED TENDENCY TO BRUISE [None]
  - DIARRHOEA [None]
  - WEIGHT DECREASED [None]
  - MIGRAINE [None]
  - INTERVERTEBRAL DISC DEGENERATION [None]
  - INFLUENZA LIKE ILLNESS [None]
  - BLINDNESS TRANSIENT [None]
  - SCIATICA [None]
  - HYPOAESTHESIA [None]
  - AMNESIA [None]
  - MEMORY IMPAIRMENT [None]
  - PAIN [None]
  - ABASIA [None]
  - POOR VENOUS ACCESS [None]
  - NAUSEA [None]
